FAERS Safety Report 18977893 (Version 1)
Quarter: 2021Q1

REPORT INFORMATION
  Report Type: Spontaneous
  Country: US (occurrence: US)
  Receive Date: 20210306
  Receipt Date: 20210306
  Transmission Date: 20210420
  Serious: No
  Sender: FDA-Public Use
  Company Number: US-GALDERMA-US2020045467

PATIENT
  Age: 20 Year
  Sex: Female

DRUGS (1)
  1. TRI?LUMA [Suspect]
     Active Substance: FLUOCINOLONE ACETONIDE\HYDROQUINONE\TRETINOIN
     Indication: ARTHROPOD BITE
     Dosage: FLUOCINOLONE ACETONIDE 0.01%, HYDROQUINONE 4%, TRETINOIN 0.05%
     Route: 061
     Dates: start: 20201009

REACTIONS (4)
  - Product physical consistency issue [Recovered/Resolved]
  - Product storage error [Recovered/Resolved]
  - Poor quality product administered [Recovered/Resolved]
  - Intentional product use issue [Recovered/Resolved]

NARRATIVE: CASE EVENT DATE: 20201009
